FAERS Safety Report 13367671 (Version 2)
Quarter: 2018Q4

REPORT INFORMATION
  Report Type: Spontaneous
  Country: PL (occurrence: PL)
  Receive Date: 20170324
  Receipt Date: 20181221
  Transmission Date: 20190204
  Serious: Yes (Hospitalization)
  Sender: FDA-Public Use
  Company Number: PL-PFIZER INC-2017121689

PATIENT
  Age: 56 Year
  Sex: Female

DRUGS (7)
  1. FLUOXETINE [Interacting]
     Active Substance: FLUOXETINE HYDROCHLORIDE
     Indication: DEPRESSION
     Dosage: 40 MG, UNK
  2. PARACETAMOL [Concomitant]
     Active Substance: ACETAMINOPHEN
     Indication: PAIN
     Dosage: 2600 MG, DAILY
  3. TRAMADOL. [Interacting]
     Active Substance: TRAMADOL
     Indication: PAIN
     Dosage: 300 MG, DAILY
  4. KETOPROFEN. [Interacting]
     Active Substance: KETOPROFEN
     Indication: ARTHRALGIA
     Dosage: 100 MG, 3X/DAY
     Route: 048
  5. SERTRALINE HCL [Suspect]
     Active Substance: SERTRALINE HYDROCHLORIDE
     Indication: DEPRESSION
     Dosage: 25 MG, UNK
  6. CIPROFLOXACIN. [Interacting]
     Active Substance: CIPROFLOXACIN
     Indication: BRONCHITIS
     Dosage: 500 MG, 2X/DAY
     Route: 048
  7. TRAZODONE [Interacting]
     Active Substance: TRAZODONE HYDROCHLORIDE
     Indication: INSOMNIA
     Dosage: 75 MG, BEFORE GOING TO SLEEP

REACTIONS (4)
  - Product prescribing error [Unknown]
  - Upper gastrointestinal haemorrhage [Unknown]
  - Serotonin syndrome [Unknown]
  - Drug interaction [Unknown]
